FAERS Safety Report 9293458 (Version 2)
Quarter: 2013Q3

REPORT INFORMATION
  Report Type: Spontaneous
  Country: US (occurrence: US)
  Receive Date: 20130516
  Receipt Date: 20130918
  Transmission Date: 20140515
  Serious: Yes (Hospitalization)
  Sender: FDA-Public Use
  Company Number: US-GLAXOSMITHKLINE-A1001447A

PATIENT
  Age: 64 Year
  Sex: Male
  Weight: 129.5 kg

DRUGS (2)
  1. AVANDIA [Suspect]
     Indication: DIABETES MELLITUS
     Dosage: 8MG PER DAY
     Route: 048
     Dates: start: 200612, end: 200703
  2. AVANDAMET [Suspect]
     Indication: DIABETES MELLITUS
     Route: 048
     Dates: start: 200703, end: 200704

REACTIONS (3)
  - Myocardial infarction [Recovered/Resolved]
  - Stent placement [Unknown]
  - Myocardial ischaemia [Unknown]
